FAERS Safety Report 10244512 (Version 1)
Quarter: 2014Q2

REPORT INFORMATION
  Report Type: Spontaneous
  Country: FR (occurrence: FR)
  Receive Date: 20140618
  Receipt Date: 20140618
  Transmission Date: 20141212
  Serious: Yes (Hospitalization)
  Sender: FDA-Public Use
  Company Number: FR-ASTRAZENECA-2014SE44545

PATIENT
  Age: 20688 Day
  Sex: Male

DRUGS (6)
  1. INEXIUM [Suspect]
     Route: 048
     Dates: start: 20140307, end: 20140324
  2. VANCOMYCINE [Suspect]
     Route: 042
     Dates: start: 20140307, end: 20140324
  3. CANCIDAS [Suspect]
     Route: 042
     Dates: start: 20140324
  4. CEFTAZIDIME [Suspect]
     Route: 042
     Dates: start: 20140321, end: 20140326
  5. FLAGYL [Suspect]
     Route: 048
     Dates: start: 20140322
  6. ZOVIRAX [Suspect]
     Route: 042
     Dates: start: 20140320, end: 20140324

REACTIONS (3)
  - Renal tubular disorder [Unknown]
  - Hypokalaemia [Unknown]
  - Therapy cessation [Unknown]
